FAERS Safety Report 8098506-X (Version None)
Quarter: 2012Q1

REPORT INFORMATION
  Report Type: 
  Country: None (occurrence: None)
  Receive Date: 20120129
  Receipt Date: 20110912
  Transmission Date: 20120608
  Serious: No
  Sender: FDA-Public Use
  Company Number: US-ABBOTT-11P-163-0854712-00

PATIENT
  Age: 36 Year
  Sex: Female

DRUGS (5)
  1. IMURAN [Concomitant]
     Indication: PRODUCT USED FOR UNKNOWN INDICATION
     Route: 048
  2. PROPRANOLOL [Concomitant]
     Indication: PRODUCT USED FOR UNKNOWN INDICATION
     Dosage: DAILY
     Dates: start: 20110831
  3. DICYCLOMINE [Concomitant]
     Indication: FLATULENCE
  4. HUMIRA [Suspect]
     Indication: CROHN'S DISEASE
     Dosage: EVERY OTHER SUNDAY
     Dates: start: 20101101
  5. NEXIUM [Concomitant]
     Indication: PRODUCT USED FOR UNKNOWN INDICATION
     Route: 048

REACTIONS (7)
  - MIGRAINE [None]
  - NAUSEA [None]
  - MIDDLE INSOMNIA [None]
  - EPISTAXIS [None]
  - DRUG INEFFECTIVE [None]
  - ALOPECIA [None]
  - HYPERACUSIS [None]
